FAERS Safety Report 19741009 (Version 1)
Quarter: 2021Q3

REPORT INFORMATION
  Report Type: Spontaneous
  Country: US (occurrence: US)
  Receive Date: 20210824
  Receipt Date: 20210824
  Transmission Date: 20211014
  Serious: No
  Sender: FDA-Public Use
  Company Number: US-DRREDDYS-SPO/USA/21/0139110

PATIENT
  Age: 15 Year
  Sex: Female

DRUGS (2)
  1. ZENATANE [Suspect]
     Active Substance: ISOTRETINOIN
     Indication: PRODUCT USED FOR UNKNOWN INDICATION
     Dosage: RMA ISSUE DATE : 22/APRIL/2021 12:00:00 AM.
     Dates: end: 202107
  2. ZENATANE [Suspect]
     Active Substance: ISOTRETINOIN
     Dosage: RMA ISSUE DATE: 18/FEBRUARY/2021 12:00:00 AM, 19/MARCH/2021 12:00:00 AM, 20/MAY/2021 12:00:00 AM, 18
     Dates: end: 202107

REACTIONS (1)
  - Therapy cessation [Unknown]
